FAERS Safety Report 25482113 (Version 2)
Quarter: 2025Q3

REPORT INFORMATION
  Report Type: Spontaneous
  Country: US (occurrence: US)
  Receive Date: 20250626
  Receipt Date: 20250704
  Transmission Date: 20251021
  Serious: Yes (Other)
  Sender: NOVO NORDISK
  Company Number: US-NOVOPROD-1465116

PATIENT
  Sex: Female
  Weight: 149.6 kg

DRUGS (1)
  1. WEGOVY [Suspect]
     Active Substance: SEMAGLUTIDE
     Indication: Weight control
     Dates: start: 202312

REACTIONS (3)
  - Tooth extraction [Unknown]
  - Oral disorder [Not Recovered/Not Resolved]
  - Dry mouth [Not Recovered/Not Resolved]
